FAERS Safety Report 6832185-1 (Version None)
Quarter: 2010Q3

REPORT INFORMATION
  Report Type: 
  Country: None (occurrence: None)
  Receive Date: 20100712
  Receipt Date: 20100629
  Transmission Date: 20110219
  Serious: Yes (Other)
  Sender: FDA-Public Use
  Company Number: PHHY2010US31404

PATIENT
  Sex: Female
  Weight: 54.9 kg

DRUGS (4)
  1. RECLAST [Suspect]
     Indication: OSTEOPOROSIS POSTMENOPAUSAL
     Dosage: ONCE A YEAR
     Dates: start: 20100511
  2. RECLAST [Suspect]
     Indication: MULTIPLE FRACTURES
  3. VITAMIN D [Concomitant]
     Dosage: UNK,
  4. CALCIUM [Concomitant]
     Dosage: UNK,

REACTIONS (4)
  - CHILLS [None]
  - INFLUENZA LIKE ILLNESS [None]
  - PAIN [None]
  - VARICELLA [None]
